FAERS Safety Report 5289073-4 (Version None)
Quarter: 2007Q1

REPORT INFORMATION
  Report Type: 
  Country: None (occurrence: None)
  Receive Date: 20070116
  Receipt Date: 20051116
  Transmission Date: 20070707
  Serious: Yes (Hospitalization)
  Sender: FDA-Public Use
  Company Number: FEI2005-3152

PATIENT
  Age: 31 Year
  Sex: Female

DRUGS (1)
  1. INTRAUTERINE COPPER CONTRACEPTIVE [Suspect]
     Indication: CONTRACEPTION
     Dosage: INTRA-UTERINE
     Route: 015
     Dates: start: 20051025, end: 20051029

REACTIONS (5)
  - ABDOMINAL PAIN [None]
  - CHILLS [None]
  - PYREXIA [None]
  - RED BLOOD CELLS URINE POSITIVE [None]
  - UTERINE PERFORATION [None]
